FAERS Safety Report 6657161-3 (Version None)
Quarter: 2010Q1

REPORT INFORMATION
  Report Type: 
  Country: None (occurrence: None)
  Receive Date: 20100330
  Receipt Date: 20100222
  Transmission Date: 20100710
  Serious: No
  Sender: FDA-Public Use
  Company Number: US-JNJFOC-20100108172

PATIENT
  Sex: Female
  Weight: 104.33 kg

DRUGS (7)
  1. INVEGA SUSTENNA [Suspect]
     Indication: DRUG USE FOR UNKNOWN INDICATION
     Route: 030
  2. INVEGA SUSTENNA [Suspect]
     Route: 030
  3. ARTANE [Concomitant]
     Indication: EXTRAPYRAMIDAL DISORDER
  4. STELAZINE [Concomitant]
     Indication: SCHIZOPHRENIA
  5. PROZAC [Concomitant]
     Indication: DEPRESSION
  6. SYNTHROID [Concomitant]
     Indication: HYPOTHYROIDISM
  7. ZOCOR [Concomitant]
     Indication: BLOOD CHOLESTEROL

REACTIONS (3)
  - CELLULITIS [None]
  - INJECTION SITE REACTION [None]
  - PRURITUS [None]
